FAERS Safety Report 5276110-6 (Version None)
Quarter: 2007Q1

REPORT INFORMATION
  Report Type: 
  Country: None (occurrence: None)
  Receive Date: 20070326
  Receipt Date: 20070314
  Transmission Date: 20070707
  Serious: Yes (Hospitalization)
  Sender: FDA-Public Use
  Company Number: 2007AP01596

PATIENT
  Age: 70 Year
  Sex: Female

DRUGS (4)
  1. ARIMIDEX [Suspect]
     Indication: BREAST CANCER
     Route: 048
  2. ARIMIDEX [Suspect]
     Route: 048
     Dates: start: 20070104, end: 20070127
  3. NOLVADEX [Suspect]
     Indication: BREAST CANCER
     Route: 048
  4. PACLITAXEL [Concomitant]
     Indication: BREAST CANCER
     Dosage: 8 COURSES
     Dates: end: 20060101

REACTIONS (1)
  - INTERSTITIAL LUNG DISEASE [None]
